FAERS Safety Report 10892752 (Version 1)
Quarter: 2015Q1

REPORT INFORMATION
  Report Type: Spontaneous
  Country: US (occurrence: US)
  Receive Date: 20150306
  Receipt Date: 20150306
  Transmission Date: 20150721
  Serious: Yes (Other)
  Sender: FDA-Public Use
  Company Number: US-ELI_LILLY_AND_COMPANY-US201502007889

PATIENT
  Age: 12 Year
  Sex: Male

DRUGS (1)
  1. STRATTERA [Suspect]
     Active Substance: ATOMOXETINE HYDROCHLORIDE
     Indication: ATTENTION DEFICIT/HYPERACTIVITY DISORDER
     Dosage: 60 MG, QD
     Route: 065
     Dates: start: 201112, end: 201412

REACTIONS (7)
  - Epistaxis [Unknown]
  - Panic attack [Unknown]
  - Self-injurious ideation [Unknown]
  - Mood altered [Unknown]
  - Delusion [Unknown]
  - Stress [Unknown]
  - Sleep disorder [Unknown]
